FAERS Safety Report 4305786-2 (Version None)
Quarter: 2004Q1

REPORT INFORMATION
  Report Type: 
  Country: None (occurrence: None)
  Receive Date: 20040225
  Receipt Date: 20040216
  Transmission Date: 20041129
  Serious: Yes (Hospitalization, Other)
  Sender: FDA-Public Use
  Company Number: HQWYE845605FEB04

PATIENT
  Age: 67 Year
  Sex: Male

DRUGS (1)
  1. RAPAMUNE [Suspect]
     Indication: PROPHYLAXIS AGAINST TRANSPLANT REJECTION
     Dosage: 6 MG 1X PER 1 DAY
     Route: 048
     Dates: start: 20030925, end: 20040206

REACTIONS (3)
  - BLOOD CREATININE INCREASED [None]
  - IMMUNOSUPPRESSION [None]
  - KIDNEY TRANSPLANT REJECTION [None]
